FAERS Safety Report 8779596 (Version 2)
Quarter: 2013Q4

REPORT INFORMATION
  Report Type: Spontaneous
  Country: US (occurrence: US)
  Receive Date: 20120912
  Receipt Date: 20131031
  Transmission Date: 20140711
  Serious: Yes (Other)
  Sender: FDA-Public Use
  Company Number: US-009507513-1209USA003091

PATIENT
  Age: 52 Year
  Sex: Male

DRUGS (9)
  1. ISENTRESS [Suspect]
     Dosage: 400 MG, Q12H
     Route: 048
  2. FLUOXETINE [Suspect]
  3. RISPERIDONE [Concomitant]
  4. FINASTERIDE [Concomitant]
  5. OMEPRAZOLE [Concomitant]
  6. DILTIAZEM HYDROCHLORIDE [Concomitant]
  7. DEPAKOTE [Concomitant]
  8. TRUVADA [Concomitant]
  9. DEXTROAMPHETAMINE [Concomitant]

REACTIONS (7)
  - Swelling [Unknown]
  - Joint stiffness [Unknown]
  - Pain in extremity [Unknown]
  - Myalgia [Unknown]
  - Oedema peripheral [Unknown]
  - Blood creatine phosphokinase increased [Unknown]
  - Diarrhoea [Unknown]
